FAERS Safety Report 5855760-X (Version None)
Quarter: 2008Q3

REPORT INFORMATION
  Report Type: 
  Country: None (occurrence: None)
  Receive Date: 20080821
  Receipt Date: 20080821
  Transmission Date: 20090109
  Serious: Yes (Hospitalization)
  Sender: FDA-Public Use
  Company Number: None

PATIENT
  Age: 78 Year
  Sex: Female
  Weight: 73.4827 kg

DRUGS (1)
  1. SEROQUEL [Suspect]
     Indication: SEDATION
     Dosage: 1 1 EVERY AM OTHER
     Route: 050
     Dates: start: 20080720, end: 20080820

REACTIONS (6)
  - CONFUSIONAL STATE [None]
  - CONVULSION [None]
  - DRUG PRESCRIBING ERROR [None]
  - HYPERTENSION [None]
  - HYPOPHAGIA [None]
  - IMMOBILE [None]
